FAERS Safety Report 4658664-3 (Version None)
Quarter: 2005Q2

REPORT INFORMATION
  Report Type: 
  Country: None (occurrence: None)
  Receive Date: 20050509
  Receipt Date: 20050420
  Transmission Date: 20051028
  Serious: Yes (Life-Threatening)
  Sender: FDA-Public Use
  Company Number: ALMO2005026

PATIENT
  Age: 58 Year
  Sex: Male
  Weight: 70 kg

DRUGS (1)
  1. AMIGNUL 12.5MG 6 COMPRIMIDOS [Suspect]
     Indication: MIGRAINE
     Dates: start: 20040423, end: 20040512

REACTIONS (2)
  - ANGINA UNSTABLE [None]
  - VASOSPASM [None]
